FAERS Safety Report 16436996 (Version 1)
Quarter: 2019Q2

REPORT INFORMATION
  Report Type: Report from Study
  Country: None (occurrence: AU)
  Receive Date: 20190614
  Receipt Date: 20190614
  Transmission Date: 20190711
  Serious: Yes (Hospitalization)
  Sender: FDA-Public Use
  Company Number: AU-ABBVIE-19K-008-2821182-00

PATIENT
  Sex: Female

DRUGS (1)
  1. HUMIRA [Suspect]
     Active Substance: ADALIMUMAB
     Indication: RHEUMATOID ARTHRITIS
     Route: 058

REACTIONS (5)
  - Weight decreased [Unknown]
  - Tropical infectious disease [Recovering/Resolving]
  - Influenza [Recovering/Resolving]
  - Viral infection [Recovering/Resolving]
  - Arthropod bite [Recovering/Resolving]

NARRATIVE: CASE EVENT DATE: 2019
